FAERS Safety Report 22136437 (Version 1)
Quarter: 2023Q1

REPORT INFORMATION
  Report Type: Spontaneous
  Country: FR (occurrence: FR)
  Receive Date: 20230324
  Receipt Date: 20230324
  Transmission Date: 20230417
  Serious: Yes (Hospitalization)
  Sender: FDA-Public Use
  Company Number: None

PATIENT
  Age: 45 Year
  Sex: Male
  Weight: 73 kg

DRUGS (9)
  1. VANCOMYCIN [Suspect]
     Active Substance: VANCOMYCIN
     Indication: Infection
     Dosage: DRUG: TAZOCILLINE 4 G/500 MG, POUDRE POUR  SOLUTION POUR PERFUSION, ENOXAPARINE SODIQUE ((MAMMIFERE/
     Route: 042
     Dates: start: 20220818, end: 20220827
  2. RIFAMPIN [Suspect]
     Active Substance: RIFAMPIN
     Indication: Infection
     Dosage: 600 MILLIGRAM, QD
     Route: 048
     Dates: start: 20220908, end: 20220912
  3. PIPERACILLIN SODIUM\TAZOBACTAM SODIUM [Suspect]
     Active Substance: PIPERACILLIN SODIUM\TAZOBACTAM SODIUM
     Indication: Infection
     Dosage: 12 GRAM, QD (4 G, 3X/D)
     Route: 042
     Dates: start: 20220818, end: 20220912
  4. AZITHROMYCIN [Concomitant]
     Active Substance: AZITHROMYCIN
     Dosage: UNK
     Route: 065
  5. OXYCODONE [Concomitant]
     Active Substance: OXYCODONE
     Dosage: UNK
     Route: 065
  6. OXYCODONE HYDROCHLORIDE [Concomitant]
     Active Substance: OXYCODONE HYDROCHLORIDE
     Dosage: UNK
     Route: 065
  7. DOLIPRANE [Concomitant]
     Active Substance: ACETAMINOPHEN
     Dosage: UNK
     Route: 065
  8. LOVENOX [Concomitant]
     Active Substance: ENOXAPARIN SODIUM
     Dosage: UNK
     Route: 065
  9. ACUPAN [Concomitant]
     Active Substance: NEFOPAM HYDROCHLORIDE
     Dosage: UNK
     Route: 065

REACTIONS (3)
  - Cell death [Recovered/Resolved]
  - Cholestasis [Recovered/Resolved]
  - Acute kidney injury [Recovered/Resolved]

NARRATIVE: CASE EVENT DATE: 20220827
